FAERS Safety Report 24689799 (Version 1)
Quarter: 2024Q4

REPORT INFORMATION
  Report Type: Spontaneous
  Country: JP (occurrence: JP)
  Receive Date: 20241203
  Receipt Date: 20241203
  Transmission Date: 20250114
  Serious: Yes (Hospitalization, Other)
  Sender: ABBVIE
  Company Number: JP-ABBVIE-6027534

PATIENT
  Age: 69 Year
  Sex: Female

DRUGS (6)
  1. FOSCARBIDOPA\FOSLEVODOPA [Suspect]
     Active Substance: FOSCARBIDOPA\FOSLEVODOPA
     Indication: Product used for unknown indication
     Dosage: 0.15 ML/H
     Route: 058
  2. FOSCARBIDOPA\FOSLEVODOPA [Suspect]
     Active Substance: FOSCARBIDOPA\FOSLEVODOPA
     Dosage: 0.20 ML/H
     Route: 058
  3. Carbidopa hydrate and levodopa [Concomitant]
     Indication: Product used for unknown indication
     Dosage: 300 MG
     Route: 048
  4. ISTRADEFYLLINE [Concomitant]
     Active Substance: ISTRADEFYLLINE
     Indication: Product used for unknown indication
     Route: 048
  5. PRAMIPEXOLE DIHYDROCHLORIDE [Concomitant]
     Active Substance: PRAMIPEXOLE DIHYDROCHLORIDE
     Indication: Product used for unknown indication
     Route: 048
  6. SELEGILINE HYDROCHLORIDE [Concomitant]
     Active Substance: SELEGILINE HYDROCHLORIDE
     Indication: Product used for unknown indication
     Route: 048

REACTIONS (8)
  - Movement disorder [Unknown]
  - Infusion site induration [Unknown]
  - Infusion site erythema [Unknown]
  - Infusion site pain [Unknown]
  - Suicidal ideation [Unknown]
  - Dyskinesia [Unknown]
  - Infusion site erythema [Recovering/Resolving]
  - Infusion site induration [Recovering/Resolving]
